FAERS Safety Report 21250926 (Version 4)
Quarter: 2022Q4

REPORT INFORMATION
  Report Type: Report from Study
  Country: BE (occurrence: BE)
  Receive Date: 20220824
  Receipt Date: 20221019
  Transmission Date: 20230113
  Serious: Yes (Death, Hospitalization, Other)
  Sender: FDA-Public Use
  Company Number: BE-ABBVIE-22K-013-4515074-00

PATIENT
  Sex: Female

DRUGS (8)
  1. CARBIDOPA\LEVODOPA [Suspect]
     Active Substance: CARBIDOPA\LEVODOPA
     Indication: Parkinson^s disease
     Route: 050
     Dates: start: 20181112
  2. CARBIDOPA\LEVODOPA [Suspect]
     Active Substance: CARBIDOPA\LEVODOPA
     Dosage: MD 3.0 ML, CD 1.9 ML/H, ED 1.0 ML, DURING 16 HRS
     Route: 050
     Dates: start: 20220707
  3. AMANTADINE [Concomitant]
     Active Substance: AMANTADINE
     Indication: Product used for unknown indication
     Dosage: AT 7H AND 12H
  4. BENSERAZIDE\LEVODOPA [Concomitant]
     Active Substance: BENSERAZIDE\LEVODOPA
     Indication: Product used for unknown indication
  5. BENSERAZIDE\LEVODOPA [Concomitant]
     Active Substance: BENSERAZIDE\LEVODOPA
     Indication: Product used for unknown indication
     Dosage: AT BEDTIME?FORM STRENGTH:125 MG
  6. STALEVO [Concomitant]
     Active Substance: CARBIDOPA\ENTACAPONE\LEVODOPA
     Indication: Product used for unknown indication
     Dosage: FORM STRENGTH:100 UNITS: UNKNOWN?AT 12H AND 17H
  7. BENSERAZIDE\LEVODOPA [Concomitant]
     Active Substance: BENSERAZIDE\LEVODOPA
     Indication: Product used for unknown indication
     Dosage: 2 TABLETS IF NECESSARY DURING THE DAY AND IF WRONG ANSWER TO ED?FORM STRENGTH: 125 MG
  8. STALEVO [Concomitant]
     Active Substance: CARBIDOPA\ENTACAPONE\LEVODOPA
     Indication: Product used for unknown indication
     Dosage: AT 7H?FORM STRENGTH: 125 UNITS: UNKNOWN

REACTIONS (9)
  - Fall [Unknown]
  - Urinary tract obstruction [Unknown]
  - Acute respiratory distress syndrome [Unknown]
  - Loss of consciousness [Unknown]
  - Hypotension [Unknown]
  - Bronchitis [Unknown]
  - General physical health deterioration [Unknown]
  - Procedural pneumothorax [Unknown]
  - Death [Fatal]

NARRATIVE: CASE EVENT DATE: 20220901
